FAERS Safety Report 8590435-8 (Version None)
Quarter: 2012Q3

REPORT INFORMATION
  Report Type: 
  Country: None (occurrence: None)
  Receive Date: 20120813
  Receipt Date: 20120730
  Transmission Date: 20120928
  Serious: No
  Sender: FDA-Public Use
  Company Number: US-ASTRAZENECA-2011SE14909

PATIENT
  Age: 62 Year
  Sex: Female

DRUGS (6)
  1. ZOMIG [Suspect]
     Indication: MIGRAINE
     Route: 048
     Dates: start: 19960101
  2. IMITREX [Suspect]
     Route: 065
  3. RELPAX [Concomitant]
  4. MAXALT [Concomitant]
  5. BOTOX [Concomitant]
  6. PROPHYOLACTIC MEDS [Concomitant]

REACTIONS (3)
  - CHEST DISCOMFORT [None]
  - ADVERSE EVENT [None]
  - DRUG INEFFECTIVE [None]
